FAERS Safety Report 9413004 (Version 1)
Quarter: 2013Q3

REPORT INFORMATION
  Report Type: Spontaneous
  Country: US (occurrence: US)
  Receive Date: 20130722
  Receipt Date: 20130722
  Transmission Date: 20140515
  Serious: No
  Sender: FDA-Public Use
  Company Number: US-B.I. PHARMACEUTICALS,INC./RIDGEFIELD-2013-BI-21217BP

PATIENT
  Age: 87 Year
  Sex: Female
  Weight: 77 kg

DRUGS (11)
  1. SPIRIVA [Suspect]
     Indication: CHRONIC OBSTRUCTIVE PULMONARY DISEASE
     Dosage: 18 MCG
     Route: 048
     Dates: start: 2007
  2. NEXIUM [Concomitant]
     Indication: GASTROOESOPHAGEAL REFLUX DISEASE
     Dosage: 40 MG
     Route: 048
  3. PLAVIX [Concomitant]
     Indication: CAROTID ARTERY STENT INSERTION
     Dosage: 75 MG
     Route: 048
  4. SIMVASTATIN [Concomitant]
     Indication: BLOOD CHOLESTEROL INCREASED
     Dosage: 10 MG
     Route: 048
  5. GLUCOTROL XL [Concomitant]
     Indication: TYPE 2 DIABETES MELLITUS
     Dosage: 20 MG
     Route: 048
  6. IRON [Concomitant]
     Dosage: (CAPLET)
     Route: 048
  7. LISINOPRIL [Concomitant]
     Indication: HYPERTENSION
     Dosage: 20 MG
     Route: 048
  8. ADVAIR [Concomitant]
     Indication: CHRONIC OBSTRUCTIVE PULMONARY DISEASE
     Dosage: (INHALATION AEROSOL) STRENGTH: 250MG/50MG; DAILY DOSE: 500MG/100MG
     Route: 055
  9. AMITRIPTYLINE [Concomitant]
     Indication: AUTOMATIC BLADDER
     Dosage: 10 MG
     Route: 048
  10. CALTRATE [Concomitant]
     Indication: MINERAL SUPPLEMENTATION
     Dosage: (TABLET)
     Route: 048
  11. VITAMIN C [Concomitant]
     Dosage: (TABLET)
     Route: 048

REACTIONS (1)
  - Pneumonia [Not Recovered/Not Resolved]
